FAERS Safety Report 7850949-2 (Version None)
Quarter: 2011Q4

REPORT INFORMATION
  Report Type: 
  Country: None (occurrence: None)
  Receive Date: 20111024
  Receipt Date: 20110926
  Transmission Date: 20120403
  Serious: Yes (Life-Threatening)
  Sender: FDA-Public Use
  Company Number: 2011229340

PATIENT
  Age: 37 Year
  Sex: Male

DRUGS (2)
  1. CERUBIDINE [Suspect]
     Indication: ACUTE LEUKAEMIA
     Dosage: 60 MG/M2, 1X/DAY, INTRAVENOUS
     Route: 042
     Dates: start: 20100608, end: 20100610
  2. CYTARABINE [Suspect]
     Indication: LEUKAEMIA
     Dosage: 200 MG/M2,  1X/DAY, INTRAVENOUS
     Route: 042
     Dates: start: 20100608, end: 20100612

REACTIONS (1)
  - SEPTIC SHOCK [None]
